FAERS Safety Report 20461612 (Version 1)
Quarter: 2022Q1

REPORT INFORMATION
  Report Type: Spontaneous
  Country: FR (occurrence: FR)
  Receive Date: 20220211
  Receipt Date: 20220211
  Transmission Date: 20220423
  Serious: Yes (Death, Congenital Anomaly, Other)
  Sender: FDA-Public Use
  Company Number: FR-ABBVIE-22K-056-4273503-00

PATIENT

DRUGS (2)
  1. VALPROATE SODIUM [Suspect]
     Active Substance: VALPROATE SODIUM
     Indication: Maternal exposure timing unspecified
     Route: 064
  2. LAMOTRIGINE [Suspect]
     Active Substance: LAMOTRIGINE
     Indication: Maternal exposure timing unspecified
     Route: 064

REACTIONS (4)
  - Congenital aortic atresia [Fatal]
  - Mitral valve incompetence [Fatal]
  - Left ventricular hypertrophy [Fatal]
  - Foetal exposure during pregnancy [Unknown]
